FAERS Safety Report 9949347 (Version 1)
Quarter: 2014Q1

REPORT INFORMATION
  Report Type: Spontaneous
  Country: US (occurrence: None)
  Receive Date: 20140122
  Receipt Date: 20140122
  Transmission Date: 20141002
  Serious: No
  Sender: FDA-Public Use
  Company Number: AEGR000161

PATIENT
  Sex: Female

DRUGS (5)
  1. JUXTAPID (LOMITAPIDE) CAPSULE, 5MG [Suspect]
     Indication: TYPE IIA HYPERLIPIDAEMIA
     Route: 048
     Dates: start: 201303, end: 2013
  2. JUXTAPID (LOMITAPIDE) CAPSULE, 5MG [Suspect]
     Route: 048
     Dates: start: 201303, end: 2013
  3. CRESTOR [Suspect]
     Dosage: UNKNOWN
     Dates: end: 2013
  4. VITAMIN E (TOCOPHERYL ACID SUCCINATE) [Concomitant]
  5. FISH OIL (FISH OIL) [Concomitant]

REACTIONS (1)
  - Liver function test abnormal [None]
